FAERS Safety Report 5124266-8 (Version None)
Quarter: 2006Q3

REPORT INFORMATION
  Report Type: 
  Country: None (occurrence: None)
  Receive Date: 20060816
  Receipt Date: 20060605
  Transmission Date: 20061208
  Serious: No
  Sender: FDA-Public Use
  Company Number: US200604003409

PATIENT
  Age: 63 Year
  Sex: Male

DRUGS (2)
  1. CIALIS [Suspect]
     Dosage: 10 MG
  2. VIAGRA /SWE/(SILDENAFIL CITRATE) [Concomitant]

REACTIONS (3)
  - ERECTILE DYSFUNCTION [None]
  - PENIS DISORDER [None]
  - TESTICULAR PAIN [None]
